FAERS Safety Report 25508415 (Version 1)
Quarter: 2025Q3

REPORT INFORMATION
  Report Type: Spontaneous
  Country: CO (occurrence: CO)
  Receive Date: 20250703
  Receipt Date: 20250703
  Transmission Date: 20251020
  Serious: Yes (Hospitalization, Other)
  Sender: CHEPLAPHARM
  Company Number: CO-CHEPLA-2025008078

PATIENT
  Age: 32 Year
  Sex: Female

DRUGS (7)
  1. CLONAZEPAM [Suspect]
     Active Substance: CLONAZEPAM
     Indication: Product used for unknown indication
  2. BRIVIACT [Concomitant]
     Active Substance: BRIVARACETAM
     Route: 048
     Dates: start: 20210820
  3. LACOSAMIDE [Concomitant]
     Active Substance: LACOSAMIDE
  4. RISPERIDONE [Concomitant]
     Active Substance: RISPERIDONE
  5. LEVOTHYROXINE [Concomitant]
     Active Substance: LEVOTHYROXINE
  6. VITAMINS [Concomitant]
     Active Substance: VITAMINS
  7. Omega [Concomitant]

REACTIONS (6)
  - Pneumonia [Recovered/Resolved]
  - Speech disorder [Recovered/Resolved]
  - Emotional disorder [Unknown]
  - Mobility decreased [Recovered/Resolved]
  - Body temperature increased [Recovered/Resolved]
  - Chest discomfort [Recovered/Resolved]

NARRATIVE: CASE EVENT DATE: 20250315
